FAERS Safety Report 4368354-2 (Version None)
Quarter: 2004Q2

REPORT INFORMATION
  Report Type: 
  Country: None (occurrence: None)
  Receive Date: 20040525
  Receipt Date: 20040510
  Transmission Date: 20050107
  Serious: Yes (Death, Hospitalization)
  Sender: FDA-Public Use
  Company Number: L04-NZL-02282-03

PATIENT
  Age: 79 Year
  Sex: Female

DRUGS (10)
  1. DILTIAZEM [Suspect]
     Dosage: 180 MG QD PO
     Route: 048
  2. SIMVASTATIN [Suspect]
     Dosage: 60 MG QD
  3. SIMVASTATIN [Suspect]
     Dosage: 40 MG QD
  4. WARFARIN SODIUM [Concomitant]
  5. HORMONE REPLACEMENT THERAPY [Concomitant]
  6. ISOSORBIDE MONONITRATE [Concomitant]
  7. FUROSEMIDE [Concomitant]
  8. PERHEXILINE [Concomitant]
  9. ATENOLOL [Concomitant]
  10. PANTOPRAZOLE [Concomitant]

REACTIONS (5)
  - CARDIAC FAILURE [None]
  - GENERAL PHYSICAL HEALTH DETERIORATION [None]
  - HAEMODIALYSIS [None]
  - RENAL FAILURE ACUTE [None]
  - RHABDOMYOLYSIS [None]
